FAERS Safety Report 4713801-7 (Version None)
Quarter: 2005Q3

REPORT INFORMATION
  Report Type: 
  Country: None (occurrence: None)
  Receive Date: 20050713
  Receipt Date: 20050628
  Transmission Date: 20060218
  Serious: Yes (Life-Threatening, Hospitalization, Other)
  Sender: FDA-Public Use
  Company Number: USA0506101508

PATIENT
  Age: 71 Year
  Sex: Male

DRUGS (1)
  1. FORTEO [Suspect]
     Dates: start: 20050425

REACTIONS (3)
  - DYSPNOEA [None]
  - INTESTINAL STRANGULATION [None]
  - PHARMACEUTICAL PRODUCT COMPLAINT [None]
